FAERS Safety Report 6244405-5 (Version None)
Quarter: 2009Q2

REPORT INFORMATION
  Report Type: 
  Country: None (occurrence: None)
  Receive Date: 20090623
  Receipt Date: 20090623
  Transmission Date: 20091009
  Serious: Yes (Other)
  Sender: FDA-Public Use
  Company Number: None

PATIENT
  Sex: Female

DRUGS (1)
  1. DORZOLAMIDE HCL AND TIMOLOL MALEATE [Suspect]
     Indication: GLAUCOMA
     Dosage: QHS BID OPHTHALMIC TOPICAL
     Route: 047
     Dates: start: 20090201

REACTIONS (3)
  - CORNEAL DISORDER [None]
  - EYELID OEDEMA [None]
  - EYELID PTOSIS [None]
